FAERS Safety Report 13660686 (Version 1)
Quarter: 2017Q2

REPORT INFORMATION
  Report Type: Spontaneous
  Country: US (occurrence: US)
  Receive Date: 20170616
  Receipt Date: 20170616
  Transmission Date: 20170830
  Serious: No
  Sender: FDA-Public Use
  Company Number: US-BAYER-2017-115115

PATIENT

DRUGS (4)
  1. NITRO [Concomitant]
     Active Substance: NITROGLYCERIN
     Dosage: UNK
  2. NITRO [Concomitant]
     Active Substance: NITROGLYCERIN
  3. ADEMPAS [Suspect]
     Active Substance: RIOCIGUAT
  4. ADEMPAS [Suspect]
     Active Substance: RIOCIGUAT
     Dosage: UNK

REACTIONS (1)
  - General physical health deterioration [None]
